FAERS Safety Report 11102347 (Version 1)
Quarter: 2015Q2

REPORT INFORMATION
  Report Type: Spontaneous
  Country: US (occurrence: None)
  Receive Date: 20150507
  Receipt Date: 20150507
  Transmission Date: 20150821
  Serious: Yes (Other)
  Sender: FDA-Public Use
  Company Number: INS201406-000107

PATIENT
  Sex: Female
  Weight: 63.5 kg

DRUGS (6)
  1. FUROSEMIDE. [Concomitant]
     Active Substance: FUROSEMIDE
  2. SUBSYS [Suspect]
     Active Substance: FENTANYL
     Indication: NERVE INJURY
     Dosage: 1600 UG, UP TO 2 SPRAYS EVERY 4-6 HOURS
     Route: 060
     Dates: start: 201402
  3. METHADONE [Concomitant]
     Active Substance: METHADONE HYDROCHLORIDE
  4. BENICAR (OLMESARTAN MEDOXIMIL) [Concomitant]
  5. POTASSIUM [Concomitant]
     Active Substance: POTASSIUM
  6. FENTANYL. [Concomitant]
     Active Substance: FENTANYL

REACTIONS (3)
  - Feeling hot [None]
  - Burning sensation [None]
  - Product taste abnormal [None]

NARRATIVE: CASE EVENT DATE: 2015
